FAERS Safety Report 4871192-5 (Version None)
Quarter: 2005Q4

REPORT INFORMATION
  Report Type: 
  Country: None (occurrence: None)
  Receive Date: 20051229
  Receipt Date: 20051215
  Transmission Date: 20060501
  Serious: Yes (Other)
  Sender: FDA-Public Use
  Company Number: 2005-DE-05490GD

PATIENT
  Age: 71 Year
  Sex: Female

DRUGS (6)
  1. ASPIRIN [Suspect]
     Dosage: 80 MG (ONCE DAILY)
     Dates: start: 19940101
  2. DEXAMETHASONE [Suspect]
     Indication: MULTIPLE MYELOMA
     Dosage: 40 MG (ON DAYS 1-4, 15-19 AND 29-32 EVERY 6 WEEKS)
     Dates: start: 20040201, end: 20041101
  3. . [Suspect]
  4. SIMVASTATIN [Suspect]
     Dosage: 40 MG (ONCE DAILY)
     Dates: start: 19950401
  5. THALIDOMIDE (THALIDOMIDE) [Suspect]
     Indication: MULTIPLE MYELOMA
     Dosage: 200 MG (EACH NIGHT)
     Dates: start: 20041101
  6. VERAPAMIL [Concomitant]

REACTIONS (13)
  - ANAEMIA [None]
  - BLOOD DISORDER [None]
  - DRY MOUTH [None]
  - DYSPNOEA [None]
  - HAEMATOMA [None]
  - INFLUENZA LIKE ILLNESS [None]
  - LEUKOPENIA [None]
  - MONOCLONAL IMMUNOGLOBULIN PRESENT [None]
  - NEUTROPENIA [None]
  - OEDEMA PERIPHERAL [None]
  - PETECHIAE [None]
  - RASH [None]
  - THROMBOCYTOPENIA [None]
